FAERS Safety Report 7242213 (Version 4)
Quarter: 2012Q4

REPORT INFORMATION
  Report Type: 
  Country: CN (occurrence: CN)
  Receive Date: 20100111
  Receipt Date: 20121217
  Transmission Date: 20130627
  Serious: Yes (Death, Other)
  Sender: FDA-Public Use
  Company Number: PHHY2010CN00829

PATIENT
  Age: 23 Year
  Sex: Male

DRUGS (2)
  1. GLIVEC [Suspect]
     Indication: ACUTE LYMPHOCYTIC LEUKAEMIA
     Dosage: 400 mg, QD
     Route: 048
     Dates: start: 20050901, end: 20050915
  2. GLIVEC [Suspect]
     Dosage: 300 mg, QD
     Route: 048

REACTIONS (4)
  - Death [Fatal]
  - Oedema peripheral [None]
  - Acute lymphocytic leukaemia recurrent [Unknown]
  - Skin oedema [Unknown]
